FAERS Safety Report 22324868 (Version 1)
Quarter: 2023Q2

REPORT INFORMATION
  Report Type: Spontaneous
  Country: US (occurrence: US)
  Receive Date: 20230516
  Receipt Date: 20230516
  Transmission Date: 20230722
  Serious: No
  Sender: FDA-Public Use
  Company Number: US-TEVA-2023-US-2883897

PATIENT
  Age: 55 Year
  Sex: Male

DRUGS (1)
  1. BUPRENORPHINE [Suspect]
     Active Substance: BUPRENORPHINE
     Indication: Pain
     Dosage: 2 DOSAGE FORMS DAILY;
     Route: 060
     Dates: start: 20230425

REACTIONS (9)
  - Hypertension [Unknown]
  - Insomnia [Unknown]
  - Rhinorrhoea [Unknown]
  - Yawning [Unknown]
  - Lacrimation increased [Unknown]
  - Feeling abnormal [Unknown]
  - Product residue present [Unknown]
  - Product solubility abnormal [Unknown]
  - Product physical issue [Unknown]

NARRATIVE: CASE EVENT DATE: 20230401
